FAERS Safety Report 5315883-0 (Version None)
Quarter: 2007Q2

REPORT INFORMATION
  Report Type: 
  Country: None (occurrence: None)
  Receive Date: 20070503
  Receipt Date: 20070424
  Transmission Date: 20071010
  Serious: Yes (Life-Threatening, Hospitalization)
  Sender: FDA-Public Use
  Company Number: ES-PFIZER INC-2007032583

PATIENT
  Age: 72 Year
  Sex: Male

DRUGS (6)
  1. ALDACTONE [Suspect]
     Indication: ESSENTIAL HYPERTENSION
     Dosage: DAILY DOSE:100MG-TEXT:100 MG DAILY
     Route: 048
     Dates: start: 20060704, end: 20060827
  2. RENITEC [Interacting]
     Indication: ESSENTIAL HYPERTENSION
     Dosage: DAILY DOSE:80MG-TEXT:40 MG TWICE DAILY
     Route: 048
  3. FUROSEMIDE [Interacting]
     Indication: ESSENTIAL HYPERTENSION
     Dosage: DAILY DOSE:40MG-TEXT:40 MG ONCE DAILY
     Route: 048
  4. MANIDON [Interacting]
     Indication: CARDIAC DISORDER
     Dosage: DAILY DOSE:240MG-TEXT:240 MG DAILY
     Route: 048
  5. ALLOPURINOL [Concomitant]
     Route: 048
  6. ATORVASTATIN CALCIUM [Concomitant]
     Route: 048

REACTIONS (5)
  - ATRIOVENTRICULAR BLOCK COMPLETE [None]
  - DRUG INTERACTION [None]
  - HAEMODIALYSIS [None]
  - HYPERKALAEMIA [None]
  - RENAL FAILURE ACUTE [None]
